FAERS Safety Report 25742401 (Version 1)
Quarter: 2025Q3

REPORT INFORMATION
  Report Type: Spontaneous
  Country: EU (occurrence: EU)
  Receive Date: 20250829
  Receipt Date: 20250829
  Transmission Date: 20251020
  Serious: Yes (Life-Threatening, Hospitalization, Other)
  Sender: DR REDDYS
  Company Number: None

PATIENT
  Age: 20 Year
  Sex: Male

DRUGS (9)
  1. IBUPROFEN [Suspect]
     Active Substance: IBUPROFEN
     Indication: Suicide attempt
     Route: 065
  2. PREGABALIN [Suspect]
     Active Substance: PREGABALIN
     Indication: Focal dyscognitive seizures
     Dates: start: 201310
  3. PREGABALIN [Suspect]
     Active Substance: PREGABALIN
     Indication: Depression
     Dosage: 150MG DAILY
  4. PREGABALIN [Suspect]
     Active Substance: PREGABALIN
     Indication: Dyskinesia
  5. ALCOHOL [Suspect]
     Active Substance: ALCOHOL
     Indication: Suicide attempt
     Route: 065
  6. ALCOHOL [Suspect]
     Active Substance: ALCOHOL
     Indication: Poisoning
  7. IBUPROFEN [Suspect]
     Active Substance: IBUPROFEN
     Indication: Suicide attempt
     Route: 065
  8. ASPIRIN [Suspect]
     Active Substance: ASPIRIN
     Indication: Suicide attempt
     Route: 065
  9. TIAPRIDE HYDROCHLORIDE [Concomitant]
     Active Substance: TIAPRIDE HYDROCHLORIDE
     Indication: Dyskinesia
     Dates: start: 201307, end: 201310

REACTIONS (19)
  - Suicide attempt [Recovered/Resolved]
  - Anxiety [Recovered/Resolved]
  - Suicide attempt [Recovered/Resolved]
  - Intentional overdose [Recovered/Resolved]
  - Sleep disorder [Recovered/Resolved]
  - Overdose [Unknown]
  - Feeling of despair [Recovering/Resolving]
  - Suicidal ideation [Recovered/Resolved]
  - Toxicity to various agents [Unknown]
  - Intentional overdose [Recovered/Resolved]
  - Thinking abnormal [Unknown]
  - Apathy [Recovered/Resolved]
  - Intentional product misuse [Recovered/Resolved]
  - Major depression [Unknown]
  - Depressed mood [Recovered/Resolved]
  - Depression [Recovered/Resolved]
  - Condition aggravated [Recovering/Resolving]
  - Depression [Recovered/Resolved]
  - Depressive symptom [Recovering/Resolving]
